FAERS Safety Report 9185652 (Version 4)
Quarter: 2013Q2

REPORT INFORMATION
  Report Type: Spontaneous
  Country: US (occurrence: US)
  Receive Date: 20130325
  Receipt Date: 20130422
  Transmission Date: 20140414
  Serious: Yes (Death, Hospitalization, Other)
  Sender: FDA-Public Use
  Company Number: US-BAXTER-2013BAX010272

PATIENT
  Age: 60 Year
  Sex: Male

DRUGS (2)
  1. DIANEAL LOW CALCIUM [Suspect]
     Indication: PERITONEAL DIALYSIS
     Route: 033
     Dates: start: 201206, end: 20130403
  2. DIANEAL LOW CALCIUM [Suspect]
     Route: 033

REACTIONS (4)
  - Cardiac arrest [Fatal]
  - Gastroenteritis viral [Recovering/Resolving]
  - Asthenia [Unknown]
  - Dehydration [Unknown]
